FAERS Safety Report 25378965 (Version 1)
Quarter: 2025Q2

REPORT INFORMATION
  Report Type: Report from Study
  Country: US (occurrence: US)
  Receive Date: 20250530
  Receipt Date: 20250530
  Transmission Date: 20250716
  Serious: Yes (Other)
  Sender: ABBVIE
  Company Number: US-ABBVIE-6208182

PATIENT
  Age: 53 Year
  Sex: Female

DRUGS (2)
  1. SKYRIZI [Suspect]
     Active Substance: RISANKIZUMAB-RZAA
     Indication: Psoriatic arthropathy
     Dosage: STRENGTH: 150MG/ML
     Route: 058
     Dates: start: 202304
  2. SKYRIZI [Suspect]
     Active Substance: RISANKIZUMAB-RZAA
     Route: 058
     Dates: start: 20240105

REACTIONS (6)
  - Neck surgery [Recovering/Resolving]
  - Hepatic enzyme increased [Unknown]
  - Decreased appetite [Unknown]
  - Influenza [Recovering/Resolving]
  - Post procedural complication [Unknown]
  - Liver disorder [Not Recovered/Not Resolved]

NARRATIVE: CASE EVENT DATE: 20240701
